FAERS Safety Report 6801304-5 (Version None)
Quarter: 2010Q2

REPORT INFORMATION
  Report Type: 
  Country: None (occurrence: None)
  Receive Date: 20100629
  Receipt Date: 20100617
  Transmission Date: 20101027
  Serious: Yes (Hospitalization)
  Sender: FDA-Public Use
  Company Number: US-ROCHE-687138

PATIENT
  Sex: Female
  Weight: 81.6 kg

DRUGS (1)
  1. BEVACIZUMAB [Suspect]
     Indication: DRUG USE FOR UNKNOWN INDICATION
     Dosage: 1200 MG, Q21D
     Route: 042

REACTIONS (1)
  - HAEMORRHOIDS [None]
